FAERS Safety Report 9205389 (Version 4)
Quarter: 2013Q3

REPORT INFORMATION
  Report Type: Spontaneous
  Country: US (occurrence: US)
  Receive Date: 20130402
  Receipt Date: 20130706
  Transmission Date: 20140515
  Serious: Yes (Disabling)
  Sender: FDA-Public Use
  Company Number: US-009507513-1304USA000380

PATIENT
  Age: 19 Year
  Sex: Female
  Weight: 71.2 kg

DRUGS (4)
  1. IMPLANON [Suspect]
     Indication: CONTRACEPTION
     Dosage: 1 ROD EVERY 3 YEARS
     Route: 059
     Dates: start: 20110503, end: 20130625
  2. LIDOCAINE [Concomitant]
     Dosage: VISCOUS SOLUTION, SWISH AND SWALLOW, 15 ML, 4 TIMES A DAY
     Route: 061
  3. FLOVENT [Concomitant]
  4. CLARITIN [Concomitant]
     Route: 048

REACTIONS (6)
  - Abdominal pain [Not Recovered/Not Resolved]
  - Ovarian mass [Not Recovered/Not Resolved]
  - Ovarian cyst [Not Recovered/Not Resolved]
  - Ovulation pain [Unknown]
  - Menstruation normal [Unknown]
  - Device deployment issue [Recovered/Resolved]
